FAERS Safety Report 6199922-3 (Version None)
Quarter: 2009Q2

REPORT INFORMATION
  Report Type: 
  Country: None (occurrence: None)
  Receive Date: 20090520
  Receipt Date: 20090520
  Transmission Date: 20091009
  Serious: Yes (Other)
  Sender: FDA-Public Use
  Company Number: None

PATIENT
  Age: 84 Year
  Sex: Female
  Weight: 58.9676 kg

DRUGS (1)
  1. ALDARA [Suspect]
     Indication: SKIN CANCER
     Dosage: COVER WOUND DAILY 5 DAYS A WEE  TRANSDERMAL
     Route: 062
     Dates: start: 20090515, end: 20090515

REACTIONS (6)
  - AGITATION [None]
  - APPLICATION SITE INFLAMMATION [None]
  - APPLICATION SITE REACTION [None]
  - APPLICATION SITE SWELLING [None]
  - APPLICATION SITE WARMTH [None]
  - CONFUSIONAL STATE [None]
